FAERS Safety Report 4682917-6 (Version None)
Quarter: 2005Q2

REPORT INFORMATION
  Report Type: 
  Country: None (occurrence: None)
  Receive Date: 20050602
  Receipt Date: 20050203
  Transmission Date: 20051028
  Serious: No
  Sender: FDA-Public Use
  Company Number: US_0503113872

PATIENT
  Sex: Male

DRUGS (2)
  1. CYMBALTA [Suspect]
     Dosage: 30 MG
  2. TRAZODONE (TRAZODONE) [Concomitant]

REACTIONS (1)
  - EXTRAPYRAMIDAL DISORDER [None]
